APPROVED DRUG PRODUCT: PRIMACOR
Active Ingredient: MILRINONE LACTATE
Strength: EQ 1MG BASE/ML **Federal Register determination that product was not discontinued or withdrawn for safety or effectiveness reasons**
Dosage Form/Route: INJECTABLE;INJECTION
Application: N019436 | Product #001
Applicant: SANOFI AVENTIS US LLC
Approved: Dec 31, 1987 | RLD: Yes | RS: No | Type: DISCN